FAERS Safety Report 19905792 (Version 1)
Quarter: 2021Q3

REPORT INFORMATION
  Report Type: Spontaneous
  Country: US (occurrence: US)
  Receive Date: 20210930
  Receipt Date: 20210930
  Transmission Date: 20211014
  Serious: Yes (Other)
  Sender: FDA-Public Use
  Company Number: None

PATIENT
  Age: 31 Year
  Sex: Female
  Weight: 98.88 kg

DRUGS (5)
  1. METOCLOPRAMIDE. [Suspect]
     Active Substance: METOCLOPRAMIDE
  2. LATUDA [Suspect]
     Active Substance: LURASIDONE HYDROCHLORIDE
  3. METFORMIN [Suspect]
     Active Substance: METFORMIN HYDROCHLORIDE
  4. ONDANSETRON(UNKNOWN): 13 WEEKS PREGNANT? DELIVERY [Concomitant]
  5. ALBUTEROL(ASTHMA, PRN): BEFORE LMP? DELIVERY [Concomitant]

REACTIONS (4)
  - Pre-eclampsia [None]
  - Exposure during pregnancy [None]
  - Haemorrhage [None]
  - Postpartum haemorrhage [None]

NARRATIVE: CASE EVENT DATE: 20200630
